FAERS Safety Report 19091354 (Version 5)
Quarter: 2022Q1

REPORT INFORMATION
  Report Type: Report from Study
  Country: JP (occurrence: JP)
  Receive Date: 20210405
  Receipt Date: 20220204
  Transmission Date: 20220424
  Serious: Yes (Other)
  Sender: FDA-Public Use
  Company Number: JP-CHUGAI-A2020044808ROCHE

PATIENT
  Age: 71 Year
  Sex: Female
  Weight: 49 kg

DRUGS (77)
  1. BEVACIZUMAB [Suspect]
     Active Substance: BEVACIZUMAB
     Indication: Rectal cancer
     Dosage: DAY1
     Route: 041
     Dates: start: 20200722, end: 20200722
  2. BEVACIZUMAB [Suspect]
     Active Substance: BEVACIZUMAB
     Dosage: DAY1
     Route: 041
     Dates: start: 20200807, end: 20200807
  3. BEVACIZUMAB [Suspect]
     Active Substance: BEVACIZUMAB
     Dosage: DAY1
     Route: 041
     Dates: start: 20200829, end: 20200912
  4. BEVACIZUMAB [Suspect]
     Active Substance: BEVACIZUMAB
     Dosage: DAY1
     Route: 041
     Dates: start: 20201003, end: 20201003
  5. BEVACIZUMAB [Suspect]
     Active Substance: BEVACIZUMAB
     Dosage: DAY1
     Route: 041
     Dates: start: 20201024, end: 20201024
  6. BEVACIZUMAB [Suspect]
     Active Substance: BEVACIZUMAB
     Dosage: DAY1
     Route: 041
     Dates: start: 20201114, end: 20201128
  7. BEVACIZUMAB [Suspect]
     Active Substance: BEVACIZUMAB
     Route: 041
     Dates: start: 20201212, end: 20210306
  8. BEVACIZUMAB [Suspect]
     Active Substance: BEVACIZUMAB
     Route: 041
     Dates: start: 20210327, end: 20210410
  9. BEVACIZUMAB [Suspect]
     Active Substance: BEVACIZUMAB
     Route: 041
     Dates: start: 20210501, end: 20210612
  10. BEVACIZUMAB [Suspect]
     Active Substance: BEVACIZUMAB
     Route: 041
     Dates: start: 20210703
  11. BEVACIZUMAB [Suspect]
     Active Substance: BEVACIZUMAB
     Route: 041
     Dates: start: 20210814, end: 20210911
  12. BEVACIZUMAB [Suspect]
     Active Substance: BEVACIZUMAB
     Route: 041
     Dates: start: 20210724, end: 20210724
  13. IRINOTECAN HYDROCHLORIDE [Concomitant]
     Active Substance: IRINOTECAN HYDROCHLORIDE
     Indication: Rectal cancer
     Dosage: DAY1
     Route: 041
     Dates: start: 20200722, end: 20200722
  14. IRINOTECAN HYDROCHLORIDE [Concomitant]
     Active Substance: IRINOTECAN HYDROCHLORIDE
     Dosage: DAY1
     Route: 041
     Dates: start: 20200807, end: 20200807
  15. IRINOTECAN HYDROCHLORIDE [Concomitant]
     Active Substance: IRINOTECAN HYDROCHLORIDE
     Dosage: DAY1
     Route: 041
     Dates: start: 20200829, end: 20200912
  16. IRINOTECAN HYDROCHLORIDE [Concomitant]
     Active Substance: IRINOTECAN HYDROCHLORIDE
     Dosage: DAY1
     Route: 041
     Dates: start: 20201003, end: 20201003
  17. IRINOTECAN HYDROCHLORIDE [Concomitant]
     Active Substance: IRINOTECAN HYDROCHLORIDE
     Dosage: DAY1
     Route: 041
     Dates: start: 20201024, end: 20201024
  18. IRINOTECAN HYDROCHLORIDE [Concomitant]
     Active Substance: IRINOTECAN HYDROCHLORIDE
     Dosage: DAY1
     Route: 041
     Dates: start: 20201114, end: 20201128
  19. OXALIPLATIN [Concomitant]
     Active Substance: OXALIPLATIN
     Indication: Rectal cancer
     Dosage: DAY1
     Route: 041
     Dates: start: 20200722, end: 20200722
  20. OXALIPLATIN [Concomitant]
     Active Substance: OXALIPLATIN
     Dosage: DAY1
     Route: 041
     Dates: start: 20200807, end: 20200807
  21. OXALIPLATIN [Concomitant]
     Active Substance: OXALIPLATIN
     Dosage: DAY1
     Route: 041
     Dates: start: 20200829, end: 20200912
  22. OXALIPLATIN [Concomitant]
     Active Substance: OXALIPLATIN
     Dosage: DAY1
     Route: 041
     Dates: start: 20201003, end: 20201003
  23. OXALIPLATIN [Concomitant]
     Active Substance: OXALIPLATIN
     Dosage: DAY1
     Route: 041
     Dates: start: 20201024, end: 20201024
  24. OXALIPLATIN [Concomitant]
     Active Substance: OXALIPLATIN
     Dosage: DAY1
     Route: 041
     Dates: start: 20201114, end: 20201128
  25. FLUOROURACIL [Concomitant]
     Active Substance: FLUOROURACIL
     Indication: Rectal cancer
     Dosage: DAY1-3 AND UNCERTAIN DOSAGE
     Route: 040
     Dates: start: 20200722, end: 20200724
  26. FLUOROURACIL [Concomitant]
     Active Substance: FLUOROURACIL
     Dosage: DAY1-3
     Route: 041
     Dates: start: 20200722, end: 20200724
  27. FLUOROURACIL [Concomitant]
     Active Substance: FLUOROURACIL
     Dosage: DAY1-3 AND UNCERTAIN DOSAGE
     Route: 040
     Dates: start: 20200807, end: 20200809
  28. FLUOROURACIL [Concomitant]
     Active Substance: FLUOROURACIL
     Dosage: DAY1-3
     Route: 041
     Dates: start: 20200807, end: 20200809
  29. FLUOROURACIL [Concomitant]
     Active Substance: FLUOROURACIL
     Dosage: DAY1-3 AND UNCERTAIN DOSAGE
     Route: 040
     Dates: start: 20200829, end: 20200914
  30. FLUOROURACIL [Concomitant]
     Active Substance: FLUOROURACIL
     Dosage: DAY1-3
     Route: 041
     Dates: start: 20200829, end: 20200914
  31. FLUOROURACIL [Concomitant]
     Active Substance: FLUOROURACIL
     Dosage: DAY1-3 AND UNCERTAIN DOSAGE
     Route: 040
     Dates: start: 20201003, end: 20201005
  32. FLUOROURACIL [Concomitant]
     Active Substance: FLUOROURACIL
     Dosage: DAY1-3
     Route: 041
     Dates: start: 20201003, end: 20201005
  33. FLUOROURACIL [Concomitant]
     Active Substance: FLUOROURACIL
     Dosage: DAY1-3 AND UNCERTAIN DOSAGE
     Route: 040
     Dates: start: 20201024, end: 20201026
  34. FLUOROURACIL [Concomitant]
     Active Substance: FLUOROURACIL
     Dosage: DAY1-3
     Route: 041
     Dates: start: 20201024, end: 20201026
  35. FLUOROURACIL [Concomitant]
     Active Substance: FLUOROURACIL
     Dosage: DAY1-3 AND UNCERTAIN DOSAGE
     Route: 040
     Dates: start: 20201114
  36. FLUOROURACIL [Concomitant]
     Active Substance: FLUOROURACIL
     Dosage: DAY1-3
     Route: 041
     Dates: start: 20201114, end: 20201130
  37. FLUOROURACIL [Concomitant]
     Active Substance: FLUOROURACIL
     Dosage: DAY1-3 AND UNCERTAIN DOSAGE
     Route: 040
     Dates: start: 20201212
  38. FLUOROURACIL [Concomitant]
     Active Substance: FLUOROURACIL
     Dosage: DAY1-3
     Route: 041
     Dates: start: 20201212
  39. LEVOLEUCOVORIN CALCIUM [Concomitant]
     Active Substance: LEVOLEUCOVORIN CALCIUM
     Indication: Rectal cancer
     Dosage: DAY1
     Route: 041
     Dates: start: 20200722, end: 20200722
  40. LEVOLEUCOVORIN CALCIUM [Concomitant]
     Active Substance: LEVOLEUCOVORIN CALCIUM
     Dosage: DAY1
     Route: 041
     Dates: start: 20200807, end: 20200807
  41. LEVOLEUCOVORIN CALCIUM [Concomitant]
     Active Substance: LEVOLEUCOVORIN CALCIUM
     Dosage: DAY1
     Route: 041
     Dates: start: 20200829, end: 20200912
  42. LEVOLEUCOVORIN CALCIUM [Concomitant]
     Active Substance: LEVOLEUCOVORIN CALCIUM
     Dosage: DAY1
     Route: 041
     Dates: start: 20201003, end: 20201003
  43. LEVOLEUCOVORIN CALCIUM [Concomitant]
     Active Substance: LEVOLEUCOVORIN CALCIUM
     Dosage: DAY1
     Route: 041
     Dates: start: 20201024, end: 20201024
  44. LEVOLEUCOVORIN CALCIUM [Concomitant]
     Active Substance: LEVOLEUCOVORIN CALCIUM
     Dosage: DAY1
     Route: 041
     Dates: start: 20201114
  45. PALONOSETRON HYDROCHLORIDE [Concomitant]
     Active Substance: PALONOSETRON HYDROCHLORIDE
     Dosage: DAY1
     Route: 042
     Dates: start: 20200722, end: 20200722
  46. PALONOSETRON HYDROCHLORIDE [Concomitant]
     Active Substance: PALONOSETRON HYDROCHLORIDE
     Dosage: DAY1
     Route: 042
     Dates: start: 20200807, end: 20200807
  47. PALONOSETRON HYDROCHLORIDE [Concomitant]
     Active Substance: PALONOSETRON HYDROCHLORIDE
     Dosage: DAY1
     Route: 042
     Dates: start: 20200829, end: 20200912
  48. PALONOSETRON HYDROCHLORIDE [Concomitant]
     Active Substance: PALONOSETRON HYDROCHLORIDE
     Dosage: DAY1
     Route: 042
     Dates: start: 20201003, end: 20201003
  49. PALONOSETRON HYDROCHLORIDE [Concomitant]
     Active Substance: PALONOSETRON HYDROCHLORIDE
     Dosage: DAY1
     Route: 042
     Dates: start: 20201024, end: 20201024
  50. PALONOSETRON HYDROCHLORIDE [Concomitant]
     Active Substance: PALONOSETRON HYDROCHLORIDE
     Dosage: DAY1
     Route: 042
     Dates: start: 20201114
  51. DEXAMETHASONE SODIUM PHOSPHATE [Concomitant]
     Active Substance: DEXAMETHASONE SODIUM PHOSPHATE
     Dosage: DAY1
     Route: 042
     Dates: start: 20200722, end: 20200722
  52. DEXAMETHASONE SODIUM PHOSPHATE [Concomitant]
     Active Substance: DEXAMETHASONE SODIUM PHOSPHATE
     Dosage: DAY1
     Route: 042
     Dates: start: 20200807, end: 20200807
  53. DEXAMETHASONE SODIUM PHOSPHATE [Concomitant]
     Active Substance: DEXAMETHASONE SODIUM PHOSPHATE
     Dosage: DAY1
     Route: 042
     Dates: start: 20200829, end: 20200912
  54. DEXAMETHASONE SODIUM PHOSPHATE [Concomitant]
     Active Substance: DEXAMETHASONE SODIUM PHOSPHATE
     Dosage: DAY1
     Route: 042
     Dates: start: 20201003, end: 20201003
  55. DEXAMETHASONE SODIUM PHOSPHATE [Concomitant]
     Active Substance: DEXAMETHASONE SODIUM PHOSPHATE
     Dosage: DAY1
     Route: 042
     Dates: start: 20201024, end: 20201024
  56. DEXAMETHASONE SODIUM PHOSPHATE [Concomitant]
     Active Substance: DEXAMETHASONE SODIUM PHOSPHATE
     Dosage: DAY1
     Route: 042
     Dates: start: 20201114
  57. DEXAMETHASONE [Concomitant]
     Active Substance: DEXAMETHASONE
     Dosage: DAY2-4
     Route: 048
     Dates: start: 20200723, end: 20200725
  58. DEXAMETHASONE [Concomitant]
     Active Substance: DEXAMETHASONE
     Dosage: DAY2-4
     Route: 048
     Dates: start: 20200808, end: 20200810
  59. DEXAMETHASONE [Concomitant]
     Active Substance: DEXAMETHASONE
     Dosage: DAY2-4
     Route: 048
     Dates: start: 20200830, end: 20200915
  60. DEXAMETHASONE [Concomitant]
     Active Substance: DEXAMETHASONE
     Dosage: DAY2-4
     Route: 048
     Dates: start: 20201004, end: 20201007
  61. DEXAMETHASONE [Concomitant]
     Active Substance: DEXAMETHASONE
     Dosage: DAY2-4
     Route: 048
     Dates: start: 20201025, end: 20201028
  62. DEXAMETHASONE [Concomitant]
     Active Substance: DEXAMETHASONE
     Dosage: DAY2-4
     Route: 048
     Dates: start: 20201114
  63. APREPITANT [Concomitant]
     Active Substance: APREPITANT
     Dosage: DAY1
     Route: 048
     Dates: start: 20200722, end: 20200722
  64. APREPITANT [Concomitant]
     Active Substance: APREPITANT
     Dosage: DAY2-3
     Route: 048
     Dates: start: 20200723, end: 20200724
  65. APREPITANT [Concomitant]
     Active Substance: APREPITANT
     Dosage: DAY1
     Route: 048
     Dates: start: 20200807, end: 20200807
  66. APREPITANT [Concomitant]
     Active Substance: APREPITANT
     Dosage: DAY2-3
     Route: 048
     Dates: start: 20200808, end: 20200809
  67. APREPITANT [Concomitant]
     Active Substance: APREPITANT
     Dosage: DAY1
     Route: 048
     Dates: start: 20200829, end: 20200912
  68. APREPITANT [Concomitant]
     Active Substance: APREPITANT
     Dosage: DAY2-3
     Route: 048
     Dates: start: 20200830, end: 20200914
  69. APREPITANT [Concomitant]
     Active Substance: APREPITANT
     Dosage: DAY1
     Route: 048
     Dates: start: 20201003, end: 20201003
  70. APREPITANT [Concomitant]
     Active Substance: APREPITANT
     Dosage: DAY2-3
     Route: 048
     Dates: start: 20201004, end: 20201005
  71. APREPITANT [Concomitant]
     Active Substance: APREPITANT
     Dosage: DAY1
     Route: 048
     Dates: start: 20201024, end: 20201024
  72. APREPITANT [Concomitant]
     Active Substance: APREPITANT
     Dosage: DAY2-3
     Route: 048
     Dates: start: 20201025, end: 20201026
  73. APREPITANT [Concomitant]
     Active Substance: APREPITANT
     Dosage: DAY1
     Route: 048
     Dates: start: 20201114
  74. APREPITANT [Concomitant]
     Active Substance: APREPITANT
     Dosage: DAY2-3
     Route: 048
     Dates: start: 20201115
  75. HERBALS [Concomitant]
     Active Substance: HERBALS
     Dosage: DOSAGE IS UNCERTAIN.
     Route: 048
     Dates: end: 2020
  76. MAGNESIUM OXIDE [Concomitant]
     Active Substance: MAGNESIUM OXIDE
     Dosage: DOSAGE IS UNCERTAIN.
     Route: 048
     Dates: end: 2020
  77. SODIUM BICARBONATE [Concomitant]
     Active Substance: SODIUM BICARBONATE
     Dosage: DOSAGE IS UNCERTAIN.
     Route: 048
     Dates: end: 2020

REACTIONS (7)
  - Decreased appetite [Unknown]
  - Nausea [Recovered/Resolved]
  - Fatigue [Recovered/Resolved]
  - Peripheral sensory neuropathy [Unknown]
  - Neutrophil count decreased [Recovered/Resolved]
  - Chest pain [Recovered/Resolved]
  - Herpes zoster [Recovered/Resolved]

NARRATIVE: CASE EVENT DATE: 20200728
